FAERS Safety Report 5029333-5 (Version None)
Quarter: 2006Q2

REPORT INFORMATION
  Report Type: 
  Country: None (occurrence: None)
  Receive Date: 20060614
  Receipt Date: 20060602
  Transmission Date: 20061013
  Serious: Yes (Other)
  Sender: FDA-Public Use
  Company Number: 2006BI006868

PATIENT
  Age: 54 Year
  Sex: Female

DRUGS (7)
  1. AVONEX [Suspect]
     Indication: MULTIPLE SCLEROSIS
     Dosage: 30 UG; QW; IM
     Route: 030
     Dates: start: 19970401
  2. AVONEX [Suspect]
     Indication: MULTIPLE SCLEROSIS
     Dosage: 30 UG; QW; IM
     Route: 030
  3. HYDROCHLOROTHIAZIDE [Concomitant]
  4. AMBIEN [Concomitant]
  5. PROCARDIA [Concomitant]
  6. METOPROLOL TARTRATE [Concomitant]
  7. POTASSIUM [Concomitant]

REACTIONS (1)
  - PANCREATIC CARCINOMA [None]
